FAERS Safety Report 9859467 (Version 2)
Quarter: 2014Q1

REPORT INFORMATION
  Report Type: Report from Study
  Country: JP (occurrence: JP)
  Receive Date: 20140131
  Receipt Date: 20140131
  Transmission Date: 20141002
  Serious: Yes (Other)
  Sender: FDA-Public Use
  Company Number: JP-009507513-1305JPN007892

PATIENT
  Age: 33 Year
  Sex: Female
  Weight: 53 kg

DRUGS (9)
  1. GANIREST SUBCUTANEOUS 0.25MG SYRINGE [Suspect]
     Indication: PREVENTION OF PREMATURE OVULATION
     Dosage: 0.25 MG, QD
     Route: 058
     Dates: start: 20120211, end: 20120212
  2. FOLLISTIM [Suspect]
     Indication: IN VITRO FERTILISATION
     Dosage: TOTAL DAILY DOSE: 225(UNDER 1000 UNIT)
     Route: 058
     Dates: start: 20120204, end: 20120207
  3. MENOTROPINS [Concomitant]
     Indication: IN VITRO FERTILISATION
     Dosage: TOTAL DAILY DOSE: 225(UNDER 1000 UNIT)
     Route: 030
     Dates: start: 20120208, end: 20120212
  4. MENOTROPINS [Concomitant]
     Dosage: TOTAL DAILY DOSE: 150(UNDER 1000 UNIT)
     Route: 030
     Dates: start: 20120213, end: 20120213
  5. PROGESTON [Concomitant]
     Indication: IN VITRO FERTILISATION
     Dosage: TOTAL DAILY DOSE: 50(UNDER 1000 UNIT)
     Route: 030
     Dates: start: 20120217, end: 20120308
  6. PROGE DEPOT [Concomitant]
     Indication: IN VITRO FERTILISATION
     Dosage: TOTAL DAILY DOSE: 125(UNDER 1000 UNIT) QD
     Route: 030
     Dates: start: 20120309, end: 20120309
  7. PROGE DEPOT [Concomitant]
     Dosage: TOTAL DAILY DOSE: 125(UNDER 1000 UNIT)
     Route: 030
     Dates: start: 20120312, end: 20120312
  8. ESTRANA [Concomitant]
     Indication: IN VITRO FERTILISATION
     Dosage: 0.72 MG, QD
     Route: 062
     Dates: start: 20120220, end: 20120314
  9. GONADOTROPIN, CHORIONIC [Concomitant]
     Indication: OVULATION INDUCTION
     Dosage: 3 THOUSAND-MILLION UNIT
     Route: 030
     Dates: start: 20120213, end: 20120213

REACTIONS (1)
  - Abortion [Recovered/Resolved]
